FAERS Safety Report 17235109 (Version 1)
Quarter: 2019Q4

REPORT INFORMATION
  Report Type: Spontaneous
  Country: US (occurrence: US)
  Receive Date: 20191210
  Receipt Date: 20191210
  Transmission Date: 20200122
  Serious: No
  Sender: FDA-Public Use
  Company Number: None

PATIENT
  Age: 68 Year
  Sex: Male
  Weight: 79.38 kg

DRUGS (2)
  1. DRESSING, TEGADERM CHG (DRESSING, TEGADERM CHG 3.5IN X 4.5IN #1657) [Suspect]
     Active Substance: CHLORHEXIDINE GLUCONATE\DEVICE
     Indication: POSTOPERATIVE CARE
     Dates: start: 20190422, end: 20190430
  2. PEMBROLIZUMAB (PEMBROLIZUMAB 50MG/VIL INJ) [Suspect]
     Active Substance: PEMBROLIZUMAB
     Indication: LUNG NEOPLASM MALIGNANT
     Dosage: ?          OTHER FREQUENCY:UD;?
     Route: 042
     Dates: start: 20190422, end: 20190611

REACTIONS (5)
  - Stoma site rash [None]
  - Dermatitis contact [None]
  - Pruritus [None]
  - Swelling [None]
  - Urticaria [None]

NARRATIVE: CASE EVENT DATE: 20190430
